FAERS Safety Report 4893823-6 (Version None)
Quarter: 2006Q1

REPORT INFORMATION
  Report Type: 
  Country: None (occurrence: None)
  Receive Date: 20060127
  Receipt Date: 20050603
  Transmission Date: 20060701
  Serious: No
  Sender: FDA-Public Use
  Company Number: US-GLAXOSMITHKLINE-A0561118A

PATIENT
  Age: 55 Year
  Sex: Male

DRUGS (11)
  1. MEPRON [Suspect]
     Indication: INFECTION PROPHYLAXIS
     Dosage: 10ML PER DAY
     Route: 048
     Dates: start: 20050511
  2. NEORAL [Concomitant]
  3. CELLCEPT [Concomitant]
  4. PREDNISONE [Concomitant]
  5. VALCYTE [Concomitant]
  6. PROTONIX [Concomitant]
  7. LIPITOR [Concomitant]
  8. ASPIRIN [Concomitant]
  9. VITAMIN [Concomitant]
  10. IRON [Concomitant]
  11. CALCIUM GLUCONATE [Concomitant]

REACTIONS (1)
  - XANTHOPSIA [None]
